FAERS Safety Report 5097980-0 (Version None)
Quarter: 2006Q3

REPORT INFORMATION
  Report Type: 
  Country: None (occurrence: None)
  Receive Date: 20060905
  Receipt Date: 20060905
  Transmission Date: 20061208
  Serious: Yes (Hospitalization)
  Sender: FDA-Public Use
  Company Number: None

PATIENT
  Age: 49 Year
  Sex: Male

DRUGS (8)
  1. VANCOMYCIN [Suspect]
     Indication: CELLULITIS
     Dosage: 1000MG  IV  Q12G X 2 DOSES
     Route: 042
     Dates: start: 20060701, end: 20060702
  2. ATENOLOL [Concomitant]
  3. ENALAPRIL MALEATE [Concomitant]
  4. FLUNISOLIDE [Concomitant]
  5. HEPARIN [Concomitant]
  6. MORPHINE SULFATE [Concomitant]
  7. NAPROXEN [Concomitant]
  8. OMEPRAZOLE [Concomitant]

REACTIONS (3)
  - DYSARTHRIA [None]
  - PALATAL OEDEMA [None]
  - PHARYNGEAL OEDEMA [None]
